FAERS Safety Report 22089965 (Version 2)
Quarter: 2023Q1

REPORT INFORMATION
  Report Type: Spontaneous
  Country: US (occurrence: US)
  Receive Date: 20230313
  Receipt Date: 20230320
  Transmission Date: 20230417
  Serious: Yes (Hospitalization)
  Sender: FDA-Public Use
  Company Number: US-LUPIN PHARMACEUTICALS INC.-2023-01955

PATIENT

DRUGS (2)
  1. LISINOPRIL [Suspect]
     Active Substance: LISINOPRIL
     Indication: Blood pressure abnormal
     Dosage: 1 DOSAGE FORM, QD, MORNING ONCE A DAY
     Route: 048
     Dates: end: 20230227
  2. LASIX [Suspect]
     Active Substance: FUROSEMIDE
     Indication: Fluid retention
     Dosage: UNK
     Route: 065

REACTIONS (3)
  - Swollen tongue [Recovered/Resolved]
  - Swelling face [Recovering/Resolving]
  - Blood pressure increased [Recovering/Resolving]
